FAERS Safety Report 7480761-8 (Version None)
Quarter: 2011Q2

REPORT INFORMATION
  Report Type: 
  Country: None (occurrence: None)
  Receive Date: 20110516
  Receipt Date: 20110504
  Transmission Date: 20111010
  Serious: No
  Sender: FDA-Public Use
  Company Number: US-BAYER-2011-038626

PATIENT
  Age: 26 Year
  Sex: Female

DRUGS (1)
  1. MIRENA [Suspect]
     Dosage: 20 MCG/24HR, UNK
     Route: 015
     Dates: start: 20081201

REACTIONS (6)
  - DEVICE EXPULSION [None]
  - SINUSITIS [None]
  - VAGINAL HAEMORRHAGE [None]
  - GENITAL HAEMORRHAGE [None]
  - MUSCLE SPASMS [None]
  - HEADACHE [None]
